FAERS Safety Report 15413831 (Version 3)
Quarter: 2018Q3

REPORT INFORMATION
  Report Type: Spontaneous
  Country: TR (occurrence: TR)
  Receive Date: 20180921
  Receipt Date: 20180928
  Transmission Date: 20181010
  Serious: Yes (Hospitalization, Other)
  Sender: FDA-Public Use
  Company Number: TR-PFIZER INC-2018382828

PATIENT

DRUGS (1)
  1. AMIODARONE HCL [Suspect]
     Active Substance: AMIODARONE HYDROCHLORIDE
     Indication: VENTRICULAR ARRHYTHMIA
     Dosage: UNK

REACTIONS (5)
  - Confusional state [Unknown]
  - Dizziness [Unknown]
  - Pulmonary toxicity [Unknown]
  - Haemoptysis [Unknown]
  - Hypertrophic cardiomyopathy [Unknown]
